FAERS Safety Report 18549113 (Version 1)
Quarter: 2020Q4

REPORT INFORMATION
  Report Type: Spontaneous
  Country: IS (occurrence: IS)
  Receive Date: 20201126
  Receipt Date: 20201126
  Transmission Date: 20210114
  Serious: Yes (Hospitalization)
  Sender: FDA-Public Use
  Company Number: IS-TEVA-2020-IS-1852022

PATIENT
  Age: 27 Year
  Sex: Female
  Weight: 67 kg

DRUGS (2)
  1. METRONIDAZOL ACTAVIS 500 MG FILMUHUOAOAR TOFLUR [Suspect]
     Active Substance: METRONIDAZOLE
     Indication: INFECTION
     Dosage: 1500 MILLIGRAM DAILY; FOR  7 DAYS
     Dates: start: 20200812, end: 20200816
  2. DOXYLIN 100 MG TOFLUR [Concomitant]
     Indication: INFECTION
     Dosage: 100 MG, 1X2
     Dates: start: 20200812, end: 20200818

REACTIONS (4)
  - Nausea [Recovered/Resolved]
  - Listless [Recovered/Resolved]
  - Oral fungal infection [Recovered/Resolved]
  - Syncope [Recovered/Resolved]

NARRATIVE: CASE EVENT DATE: 202008
